FAERS Safety Report 7301767-5 (Version None)
Quarter: 2011Q1

REPORT INFORMATION
  Report Type: 
  Country: None (occurrence: None)
  Receive Date: 20110218
  Receipt Date: 20110215
  Transmission Date: 20110831
  Serious: Yes (Death)
  Sender: FDA-Public Use
  Company Number: A0911848A

PATIENT
  Age: 53 Year
  Sex: Male

DRUGS (1)
  1. ZIAGEN [Suspect]
     Dosage: 300MG UNKNOWN
     Route: 065
     Dates: start: 20100820

REACTIONS (1)
  - LUNG CANCER METASTATIC [None]
